FAERS Safety Report 17890293 (Version 1)
Quarter: 2020Q2

REPORT INFORMATION
  Report Type: Spontaneous
  Country: BE (occurrence: BE)
  Receive Date: 20200612
  Receipt Date: 20200612
  Transmission Date: 20200714
  Serious: Yes (Death, Hospitalization)
  Sender: FDA-Public Use
  Company Number: BE-MYLANLABS-2020M1056464

PATIENT
  Age: 45 Year
  Sex: Male

DRUGS (2)
  1. ACETYLCYSTEINE. [Suspect]
     Active Substance: ACETYLCYSTEINE
     Indication: TOXICITY TO VARIOUS AGENTS
     Dosage: UNK
     Route: 065
  2. ACETAMINOPHEN. [Suspect]
     Active Substance: ACETAMINOPHEN
     Indication: PRODUCT USED FOR UNKNOWN INDICATION
     Dosage: UNK
     Route: 065

REACTIONS (9)
  - Cytotoxic oedema [Fatal]
  - Hepatic failure [Fatal]
  - Hyperammonaemic encephalopathy [Fatal]
  - Toxicity to various agents [Fatal]
  - Drug ineffective [Fatal]
  - Overdose [Fatal]
  - Hepatitis fulminant [Fatal]
  - Pyramidal tract syndrome [Fatal]
  - Intracranial pressure increased [Fatal]
